FAERS Safety Report 21362787 (Version 1)
Quarter: 2022Q3

REPORT INFORMATION
  Report Type: Spontaneous
  Country: DE (occurrence: DE)
  Receive Date: 20220922
  Receipt Date: 20220922
  Transmission Date: 20221026
  Serious: Yes (Hospitalization, Other)
  Sender: FDA-Public Use
  Company Number: DE-ADRED-08014-01

PATIENT
  Age: 50 Year
  Sex: Female

DRUGS (6)
  1. TRASTUZUMAB [Suspect]
     Active Substance: TRASTUZUMAB
     Indication: Product used for unknown indication
     Dosage: LAST ADMINISTRATION ON OCT 5TH
     Route: 040
  2. PERTUZUMAB [Suspect]
     Active Substance: PERTUZUMAB
     Indication: Product used for unknown indication
     Dosage: LAST ADMINISTRATION ON OCT 5TH
     Route: 040
  3. PACLITAXEL [Suspect]
     Active Substance: PACLITAXEL
     Indication: Product used for unknown indication
     Dosage: LAST ADMINISTRATION ON OCT 5TH
     Route: 040
  4. TAMOXIFEN [Suspect]
     Active Substance: TAMOXIFEN
     Indication: Product used for unknown indication
     Dosage: 20 MG, 0-0-1-0
     Route: 048
  5. LEVOTHYROXINE SODIUM [Concomitant]
     Active Substance: LEVOTHYROXINE SODIUM
     Dosage: 125 MICROGRAM, 1-0-0-0
     Route: 048
  6. METOPROLOL [Concomitant]
     Active Substance: METOPROLOL
     Dosage: 23.75 MG, AS NEEDED HALF TABLET DUE TO PRE-EXISTING SINUS TACHYCARDIA
     Route: 048

REACTIONS (12)
  - Angina pectoris [Unknown]
  - Product monitoring error [Unknown]
  - Labelled drug-drug interaction medication error [Unknown]
  - Dyspnoea exertional [Unknown]
  - Pericardial effusion [Unknown]
  - Chest discomfort [Unknown]
  - Chest discomfort [Unknown]
  - Tachycardia [Unknown]
  - Hypertension [Unknown]
  - Dyspnoea [Unknown]
  - Dyspnoea [Unknown]
  - Off label use [Unknown]
